FAERS Safety Report 25681142 (Version 1)
Quarter: 2025Q3

REPORT INFORMATION
  Report Type: Report from Study
  Country: EU (occurrence: EU)
  Receive Date: 20250814
  Receipt Date: 20250814
  Transmission Date: 20251021
  Serious: Yes (Other)
  Sender: AVERITAS
  Company Number: EU-GRUNENTHAL-2025-111782

PATIENT
  Age: 56 Year
  Sex: Female

DRUGS (3)
  1. QUTENZA [Suspect]
     Active Substance: CAPSAICIN
     Indication: Neuralgia
     Route: 003
     Dates: start: 20250722, end: 20250722
  2. QUTENZA [Suspect]
     Active Substance: CAPSAICIN
     Route: 003
  3. QUTENZA [Suspect]
     Active Substance: CAPSAICIN
     Route: 003

REACTIONS (9)
  - Hypersensitivity [Unknown]
  - Product use issue [Unknown]
  - Wrong technique in product usage process [Unknown]
  - Application site pain [Not Recovered/Not Resolved]
  - Taste disorder [Not Recovered/Not Resolved]
  - Eye pain [Not Recovered/Not Resolved]
  - Onychoclasis [Not Recovered/Not Resolved]
  - Application site laceration [Not Recovered/Not Resolved]
  - Feeling hot [Not Recovered/Not Resolved]

NARRATIVE: CASE EVENT DATE: 20250722
